FAERS Safety Report 21161312 (Version 1)
Quarter: 2022Q3

REPORT INFORMATION
  Report Type: Spontaneous
  Country: US (occurrence: None)
  Receive Date: 20220802
  Receipt Date: 20220802
  Transmission Date: 20221027
  Serious: Yes (Hospitalization)
  Sender: FDA-Public Use
  Company Number: None

PATIENT
  Age: 73 Year
  Sex: Male
  Weight: 68.4 kg

DRUGS (2)
  1. GEMCITABINE HYDROCHLORIDE [Suspect]
     Active Substance: GEMCITABINE HYDROCHLORIDE
     Dates: end: 20220606
  2. PACLITAXEL [Suspect]
     Active Substance: PACLITAXEL
     Dates: end: 20220606

REACTIONS (10)
  - Abdominal pain upper [None]
  - Abdominal pain [None]
  - Chills [None]
  - Tachycardia [None]
  - Leukocytosis [None]
  - Nausea [None]
  - Vomiting [None]
  - Constipation [None]
  - Biliary dilatation [None]
  - Pneumobilia [None]

NARRATIVE: CASE EVENT DATE: 20220608
